FAERS Safety Report 4390764-8 (Version None)
Quarter: 2004Q3

REPORT INFORMATION
  Report Type: 
  Country: None (occurrence: None)
  Receive Date: 20040706
  Receipt Date: 20040706
  Transmission Date: 20050211
  Serious: Yes (Hospitalization)
  Sender: FDA-Public Use
  Company Number: None

PATIENT
  Age: 65 Year
  Sex: Female
  Weight: 77 kg

DRUGS (1)
  1. URIMAX [Suspect]
     Indication: CYSTITIS INTERSTITIAL
     Dosage: 1 TAB Q6H ORAL
     Route: 048
     Dates: start: 20040101, end: 20040114

REACTIONS (4)
  - ASTHENIA [None]
  - CONFUSIONAL STATE [None]
  - HALLUCINATION [None]
  - LETHARGY [None]
